FAERS Safety Report 5761269-4 (Version None)
Quarter: 2008Q2

REPORT INFORMATION
  Report Type: 
  Country: None (occurrence: None)
  Receive Date: 20080606
  Receipt Date: 20080529
  Transmission Date: 20081010
  Serious: Yes (Hospitalization)
  Sender: FDA-Public Use
  Company Number: IT-JNJFOC-20080506084

PATIENT
  Sex: Male
  Weight: 72 kg

DRUGS (4)
  1. INTELENCE [Suspect]
     Route: 048
  2. INTELENCE [Suspect]
     Indication: HIV INFECTION
     Route: 048
  3. RALTEGRAVIR [Suspect]
     Indication: HIV INFECTION
     Route: 065
  4. MARAVIROC [Suspect]
     Indication: HIV INFECTION
     Route: 065

REACTIONS (1)
  - PANCREATIC DISORDER [None]
